FAERS Safety Report 9975704 (Version 1)
Quarter: 2014Q1

REPORT INFORMATION
  Report Type: Report from Study
  Country: US (occurrence: US)
  Receive Date: 20140306
  Receipt Date: 20140306
  Transmission Date: 20141002
  Serious: No
  Sender: FDA-Public Use
  Company Number: US-ABBVIE-13P-163-1160450-00

PATIENT
  Age: 37 Year
  Sex: Male
  Weight: 108.96 kg

DRUGS (2)
  1. HUMIRA [Suspect]
     Indication: PSORIASIS
     Route: 058
     Dates: start: 2011
  2. SHELLFISH [Concomitant]
     Indication: PRODUCT USED FOR UNKNOWN INDICATION

REACTIONS (6)
  - Depressed mood [Unknown]
  - Cardiac flutter [Unknown]
  - Anxiety [Unknown]
  - Panic attack [Unknown]
  - Stress [Unknown]
  - Dyspnoea [Unknown]
